FAERS Safety Report 20897532 (Version 1)
Quarter: 2022Q2

REPORT INFORMATION
  Report Type: Spontaneous
  Country: US (occurrence: US)
  Receive Date: 20220531
  Receipt Date: 20220531
  Transmission Date: 20220721
  Serious: No
  Sender: FDA-Public Use
  Company Number: US-PFIZER INC-202200764463

PATIENT
  Age: 51 Year
  Sex: Female
  Weight: 122.47 kg

DRUGS (2)
  1. PAXLOVID [Suspect]
     Active Substance: NIRMATRELVIR\RITONAVIR
     Indication: COVID-19 treatment
     Dosage: 500 MG, DAILY (1 NIRMATRELVIR 150MG AND 1 RITONAVIR 100MG/ 2 PILLS IN THE MORNING AND 2 AT NIGHT)
     Route: 048
     Dates: start: 20220523, end: 20220525
  2. DISOPHROL [Concomitant]
     Active Substance: DEXBROMPHENIRAMINE MALEATE\PSEUDOEPHEDRINE SULFATE
     Indication: Blood pressure abnormal
     Dosage: 10 MG

REACTIONS (3)
  - Drug hypersensitivity [Unknown]
  - Diarrhoea [Not Recovered/Not Resolved]
  - Oral discomfort [Not Recovered/Not Resolved]

NARRATIVE: CASE EVENT DATE: 20220524
